FAERS Safety Report 8646908 (Version 3)
Quarter: 2013Q4

REPORT INFORMATION
  Report Type: Spontaneous
  Country: US (occurrence: US)
  Receive Date: 20120703
  Receipt Date: 20131028
  Transmission Date: 20140711
  Serious: Yes (Life-Threatening, Hospitalization)
  Sender: FDA-Public Use
  Company Number: US-BAYER-2012-063292

PATIENT
  Age: 35 Year
  Sex: Female
  Weight: 68.03 kg

DRUGS (25)
  1. YAZ [Suspect]
     Indication: CONTRACEPTION
     Dosage: UNK
     Dates: start: 201009, end: 201204
  2. CLARITIN [Concomitant]
     Dosage: 10 MG,Q (EVERY) HS
  3. ZANTAC [Concomitant]
     Dosage: 150 MG, BID
  4. TOPAMAX [Concomitant]
     Dosage: 50 MG, Q( EVERY) HS
  5. TOPAMAX [Concomitant]
  6. ZOMIG [Concomitant]
     Dosage: 5 MG, PRN
  7. SUMATRIPTAN [Concomitant]
     Dosage: 100 MG, UNK
     Route: 048
     Dates: start: 20120117
  8. LORATADINE [Concomitant]
     Dosage: 10 MG, UNK
     Route: 048
     Dates: start: 20120117
  9. SODIUM CHLORIDE [Concomitant]
     Dosage: 0.65 %, UNK
     Route: 045
     Dates: start: 20120117
  10. FEXOFENADINE [Concomitant]
     Dosage: 60 MG, UNK
     Route: 048
     Dates: start: 20120117
  11. PSEUDOEPHEDRINE [Concomitant]
     Dosage: 30 MG, UNK
     Route: 048
     Dates: start: 20120123
  12. OXYMETAZOLINE [Concomitant]
     Dosage: UNK
     Route: 045
     Dates: start: 20120123
  13. IBUPROFEN [Concomitant]
     Dosage: 400 MG, UNK
     Route: 048
     Dates: start: 20120123
  14. BENZONATATE [Concomitant]
     Dosage: 100 MG, UNK
     Route: 048
     Dates: start: 20120123
  15. ACETAMINOPHEN [Concomitant]
     Dosage: 325 MG, UNK
     Route: 048
     Dates: start: 20120123
  16. ACETAMINOPHEN [Concomitant]
     Dosage: 160/5 ML
     Route: 048
     Dates: start: 20120222
  17. METHYLPREDNISOLONE [Concomitant]
     Dosage: UNK
     Dates: start: 20120125
  18. AMOXICILLIN [Concomitant]
     Dosage: 500 MG, UNK
     Route: 048
     Dates: start: 20120125
  19. PENICILLIN G PROCAINE [Concomitant]
     Dosage: UNK
     Dates: start: 20120125
  20. PENICILLIN G POTASSIUM [Concomitant]
     Dosage: 1 MMU
     Dates: start: 20120125
  21. ZOLMITRIPTAN [Concomitant]
     Dosage: 5 MG, UNK
     Route: 048
     Dates: start: 20120125
  22. TOPIRAMATE [Concomitant]
     Dosage: 25 MG, UNK
     Route: 048
     Dates: start: 20120125
  23. OXYCODONE HYDROCHLORIDE [Concomitant]
     Dosage: 5 MG, UNK
     Route: 048
     Dates: start: 20120222
  24. CELECOXIB [Concomitant]
     Dosage: 200 MG, UNK
     Route: 048
     Dates: start: 20120223
  25. RANITIDINE [Concomitant]
     Dosage: 150 MG, UNK
     Route: 048
     Dates: start: 20120319

REACTIONS (9)
  - Pulmonary embolism [None]
  - Injury [None]
  - Pain [None]
  - Pulmonary embolism [None]
  - Deep vein thrombosis [None]
  - Emotional distress [None]
  - Anxiety [None]
  - Psychological trauma [None]
  - Mental disorder [None]
